FAERS Safety Report 6431774-6 (Version None)
Quarter: 2009Q4

REPORT INFORMATION
  Report Type: 
  Country: None (occurrence: None)
  Receive Date: 20091104
  Receipt Date: 20091020
  Transmission Date: 20100525
  Serious: Yes (Hospitalization)
  Sender: FDA-Public Use
  Company Number: 2009002839

PATIENT
  Age: 78 Year
  Sex: Female

DRUGS (5)
  1. ERLOTINIB HYDROCHLORIDE [Suspect]
     Indication: LUNG NEOPLASM MALIGNANT
     Dosage: (150 MG,QD),ORAL
     Route: 048
     Dates: start: 20090814
  2. DI ANTALVIC [Concomitant]
  3. KETOPROFEN [Concomitant]
  4. NEXIUM [Concomitant]
  5. EFFEXOR [Concomitant]

REACTIONS (1)
  - LOWER LIMB FRACTURE [None]
